FAERS Safety Report 21708167 (Version 1)
Quarter: 2022Q4

REPORT INFORMATION
  Report Type: Report from Study
  Country: US (occurrence: US)
  Receive Date: 20221209
  Receipt Date: 20221209
  Transmission Date: 20230113
  Serious: No
  Sender: FDA-Public Use
  Company Number: US-002147023-NVSC2022US286088

PATIENT
  Age: 85 Year
  Sex: Male

DRUGS (2)
  1. ENTRESTO [Suspect]
     Active Substance: SACUBITRIL\VALSARTAN
     Indication: Cardiac failure
     Dosage: 24 MG, BID
     Route: 048
     Dates: start: 20221206
  2. ENTRESTO [Suspect]
     Active Substance: SACUBITRIL\VALSARTAN
     Dosage: 0.5 DOSAGE FORM, BID (24 MG)
     Route: 065

REACTIONS (3)
  - Hypotension [Unknown]
  - Wrong technique in product usage process [Unknown]
  - Prescribed underdose [Unknown]
